FAERS Safety Report 9645354 (Version 1)
Quarter: 2013Q4

REPORT INFORMATION
  Report Type: Spontaneous
  Country: FR (occurrence: FR)
  Receive Date: 20131025
  Receipt Date: 20131025
  Transmission Date: 20140711
  Serious: Yes (Death)
  Sender: FDA-Public Use
  Company Number: FR-SA-2013SA104664

PATIENT
  Age: 32 Year
  Sex: Male
  Weight: 104 kg

DRUGS (13)
  1. TERCIAN [Suspect]
     Indication: PRODUCT USED FOR UNKNOWN INDICATION
     Dosage: 1 UNIT IN MORNING, 1 UNIT AT MIDDAY, 2 UNITS IN EVENING
     Route: 048
     Dates: start: 20130817, end: 20130827
  2. TERCIAN [Interacting]
     Indication: PRODUCT USED FOR UNKNOWN INDICATION
     Route: 048
     Dates: start: 20130827
  3. NEULEPTIL [Interacting]
     Indication: PRODUCT USED FOR UNKNOWN INDICATION
     Route: 048
     Dates: start: 20130817, end: 20130827
  4. NEULEPTIL [Interacting]
     Indication: PRODUCT USED FOR UNKNOWN INDICATION
     Route: 048
     Dates: start: 20130827
  5. STILNOX [Interacting]
     Indication: PRODUCT USED FOR UNKNOWN INDICATION
     Route: 048
     Dates: start: 20130817
  6. SKENAN [Interacting]
     Indication: PRODUCT USED FOR UNKNOWN INDICATION
     Route: 048
     Dates: start: 20130827
  7. LYSANXIA [Interacting]
     Indication: PRODUCT USED FOR UNKNOWN INDICATION
     Route: 048
     Dates: start: 20130817, end: 20130827
  8. LYSANXIA [Interacting]
     Indication: PRODUCT USED FOR UNKNOWN INDICATION
     Route: 048
     Dates: start: 20130827
  9. APRANAX [Concomitant]
     Dosage: PELLETS IN SACHET DOSE:1 UNIT(S)
     Route: 048
     Dates: start: 20130817
  10. OMEPRAZOLE [Concomitant]
     Dosage: DOSE:1 UNIT(S)
     Route: 048
     Dates: start: 20130807
  11. CODOLIPRANE [Concomitant]
     Dosage: DOSE:2 UNIT(S)
     Route: 048
     Dates: start: 20130817
  12. BIPROFENID [Concomitant]
     Dosage: DOSE:1 UNIT(S)
     Route: 048
     Dates: start: 20130827
  13. OMEPRAZOLE [Concomitant]
     Dosage: DOSE:1 UNIT(S)
     Dates: start: 20130827

REACTIONS (2)
  - Death [Fatal]
  - Alcohol interaction [Fatal]
